FAERS Safety Report 5206507-1 (Version None)
Quarter: 2006Q4

REPORT INFORMATION
  Report Type: 
  Country: None (occurrence: None)
  Receive Date: 20061026
  Receipt Date: 20060724
  Transmission Date: 20070319
  Serious: No
  Sender: FDA-Public Use
  Company Number: 2006080379

PATIENT
  Age: 49 Year
  Sex: Female
  Weight: 77.1115 kg

DRUGS (7)
  1. LYRICA [Suspect]
     Indication: BACK PAIN
     Dosage: 150 MG (75 MG, 2 IN 1 D), ORAL
     Route: 048
     Dates: start: 20060418, end: 20060630
  2. LYRICA [Suspect]
     Indication: PAIN MANAGEMENT
     Dosage: 150 MG (75 MG, 2 IN 1 D), ORAL
     Route: 048
     Dates: start: 20060418, end: 20060630
  3. IBUPROFEN [Suspect]
     Indication: PAIN MANAGEMENT
     Dosage: 1600 MG (800 MG, 2 IN 1 D)
     Dates: start: 20060418
  4. TOPROL-XL [Concomitant]
  5. TOPAMAX [Concomitant]
  6. OGEN [Concomitant]
  7. LUNESTA [Concomitant]

REACTIONS (8)
  - DISTURBANCE IN ATTENTION [None]
  - DIZZINESS [None]
  - FEELING ABNORMAL [None]
  - HEADACHE [None]
  - NAUSEA [None]
  - NERVOUS SYSTEM DISORDER [None]
  - OEDEMA PERIPHERAL [None]
  - PERFORMANCE FEAR [None]
